FAERS Safety Report 6543899-5 (Version None)
Quarter: 2010Q1

REPORT INFORMATION
  Report Type: 
  Country: None (occurrence: None)
  Receive Date: 20100120
  Receipt Date: 20100107
  Transmission Date: 20100710
  Serious: Yes (Other)
  Sender: FDA-Public Use
  Company Number: BR-PFIZER INC-2009308788

PATIENT
  Age: 33 Year
  Sex: Female
  Weight: 73.923 kg

DRUGS (6)
  1. CHAMPIX [Suspect]
     Indication: TOBACCO USER
     Dosage: 0.5 MG, 1X/DAY
     Route: 048
     Dates: start: 20091207, end: 20091209
  2. CHAMPIX [Suspect]
     Dosage: 0.5 MG, 2X/DAY
     Route: 048
     Dates: start: 20091210, end: 20091213
  3. CHAMPIX [Suspect]
     Dosage: 1 MG, EVERY 12 HOURS
     Route: 048
     Dates: start: 20091214, end: 20100102
  4. CLONAZEPAM [Concomitant]
     Indication: INSOMNIA
     Dosage: 0.25 MG, AS NEEDED
     Dates: start: 20080101
  5. SIBUTRAMINE [Concomitant]
     Indication: WEIGHT DECREASED
     Dosage: UNK
     Dates: end: 20091201
  6. DESOBESI-M [Concomitant]
     Indication: WEIGHT DECREASED
     Dosage: UNK
     Dates: end: 20091201

REACTIONS (4)
  - HAEMATEMESIS [None]
  - OESOPHAGEAL PAIN [None]
  - THROAT IRRITATION [None]
  - URTICARIA [None]
